FAERS Safety Report 5218525-8 (Version None)
Quarter: 2007Q1

REPORT INFORMATION
  Report Type: 
  Country: None (occurrence: None)
  Receive Date: 20070122
  Receipt Date: 20070111
  Transmission Date: 20070707
  Serious: Yes (Other)
  Sender: FDA-Public Use
  Company Number: 2007SP000727

PATIENT
  Sex: Female

DRUGS (2)
  1. NASONEX [Suspect]
     Indication: MULTIPLE ALLERGIES
     Dosage: 1 DF; PRN; NAS; SEE IMAGE
  2. SALINE NOSE SPRAY [Concomitant]

REACTIONS (2)
  - BLOOD IMMUNOGLOBULIN M DECREASED [None]
  - PAPILLARY THYROID CANCER [None]
